FAERS Safety Report 11767816 (Version 1)
Quarter: 2015Q4

REPORT INFORMATION
  Report Type: Spontaneous
  Country: US (occurrence: None)
  Receive Date: 20151118
  Receipt Date: 20151118
  Transmission Date: 20160304
  Serious: Yes (Other)
  Sender: FDA-Public Use
  Company Number: M-15-012

PATIENT
  Age: 69 Year
  Sex: Female
  Weight: 77.11 kg

DRUGS (4)
  1. PILOCARPINE HCL [Suspect]
     Active Substance: PILOCARPINE HYDROCHLORIDE
     Indication: DRY MOUTH
     Dosage: ONE TABLET 5-6 X DAILY
     Dates: end: 20150401
  2. LEXAPRO [Concomitant]
     Active Substance: ESCITALOPRAM OXALATE
  3. SALAGEN [Concomitant]
     Active Substance: PILOCARPINE HYDROCHLORIDE
  4. VALIUM [Concomitant]
     Active Substance: DIAZEPAM

REACTIONS (5)
  - Rhinitis [None]
  - Gait disturbance [None]
  - Muscle twitching [None]
  - Hyperreflexia [None]
  - Lacrimation increased [None]

NARRATIVE: CASE EVENT DATE: 201501
